FAERS Safety Report 14570389 (Version 1)
Quarter: 2018Q1

REPORT INFORMATION
  Report Type: Other
  Country: GB (occurrence: GB)
  Receive Date: 20180226
  Receipt Date: 20180226
  Transmission Date: 20180509
  Serious: Yes (Life-Threatening)
  Sender: FDA-Public Use
  Company Number: GB-TAKEDA-2018TEU001019

PATIENT
  Age: 71 Year
  Sex: Male
  Weight: 69.39 kg

DRUGS (6)
  1. ACETYLSALICYLIC ACID [Concomitant]
     Active Substance: ASPIRIN
     Dosage: 75 MG, UNK
  2. LANSOPRAZOLE. [Suspect]
     Active Substance: LANSOPRAZOLE
     Indication: GASTROOESOPHAGEAL REFLUX DISEASE
     Dosage: 15 MG, UNK
     Route: 048
     Dates: start: 20160101, end: 20170913
  3. CLOPIDOGREL [Concomitant]
     Active Substance: CLOPIDOGREL BISULFATE
     Dosage: 75 MG, UNK
  4. RAMIPRIL. [Concomitant]
     Active Substance: RAMIPRIL
     Dosage: 5 MG, UNK
  5. SIMVASTATIN. [Concomitant]
     Active Substance: SIMVASTATIN
     Dosage: 40 MG, UNK
  6. BISOPROLOL [Concomitant]
     Active Substance: BISOPROLOL
     Dosage: 2.5 MG, UNK

REACTIONS (10)
  - Tachycardia [Recovered/Resolved with Sequelae]
  - Eye pain [Unknown]
  - Dizziness [Unknown]
  - Hallucination, visual [Recovered/Resolved with Sequelae]
  - Depression [Recovering/Resolving]
  - Heart rate decreased [Unknown]
  - Dysgeusia [Unknown]
  - Ageusia [Unknown]
  - Malaise [Recovered/Resolved with Sequelae]
  - Hypopnoea [Recovered/Resolved with Sequelae]

NARRATIVE: CASE EVENT DATE: 20171014
